FAERS Safety Report 5347914-6 (Version None)
Quarter: 2007Q2

REPORT INFORMATION
  Report Type: 
  Country: None (occurrence: None)
  Receive Date: 20070606
  Receipt Date: 20070529
  Transmission Date: 20071010
  Serious: Yes (Life-Threatening)
  Sender: FDA-Public Use
  Company Number: A0653549A

PATIENT
  Age: 68 Year
  Sex: Male
  Weight: 78 kg

DRUGS (2)
  1. LAPATINIB [Suspect]
     Dosage: 1500MG PER DAY
     Route: 048
     Dates: start: 20070515
  2. CISPLATIN [Concomitant]

REACTIONS (2)
  - PNEUMONIA ASPIRATION [None]
  - RENAL FAILURE [None]
